FAERS Safety Report 5248350-3 (Version None)
Quarter: 2007Q1

REPORT INFORMATION
  Report Type: 
  Country: None (occurrence: None)
  Receive Date: 20070227
  Receipt Date: 20070219
  Transmission Date: 20070707
  Serious: Yes (Hospitalization)
  Sender: FDA-Public Use
  Company Number: DE-ROXANE LABORATORIES, INC-2007-DE-00425DE

PATIENT
  Sex: Male
  Weight: 85 kg

DRUGS (6)
  1. BI 2536 [Suspect]
     Indication: PANCREATIC CARCINOMA
     Route: 042
     Dates: start: 20070118
  2. MOVICOL [Suspect]
     Indication: CONSTIPATION
     Route: 048
     Dates: start: 20070115, end: 20070118
  3. MOVICOL [Suspect]
     Route: 048
     Dates: start: 20070119
  4. SPIRONOLACTONE [Suspect]
     Route: 048
     Dates: start: 20070121, end: 20070129
  5. LAXOBERAL ABFUEHRTROPFEN [Concomitant]
     Indication: CONSTIPATION
     Route: 048
     Dates: start: 20070115
  6. TORSEMIDE [Suspect]
     Route: 048
     Dates: start: 20070121, end: 20070129

REACTIONS (5)
  - DYSPNOEA [None]
  - INFECTION [None]
  - LYMPHOEDEMA [None]
  - PLEURAL EFFUSION [None]
  - RENAL FAILURE [None]
